FAERS Safety Report 12617556 (Version 1)
Quarter: 2016Q3

REPORT INFORMATION
  Report Type: Spontaneous
  Country: US (occurrence: US)
  Receive Date: 20160803
  Receipt Date: 20160803
  Transmission Date: 20161109
  Serious: No
  Sender: FDA-Public Use
  Company Number: US-009507513-1607USA010584

PATIENT
  Age: 17 Year
  Sex: Female
  Weight: 52.15 kg

DRUGS (1)
  1. NEXPLANON [Suspect]
     Active Substance: ETONOGESTREL
     Indication: CONTRACEPTION
     Dosage: 3-YEAR IMPLANT IN THE LEFT ARM
     Route: 059
     Dates: start: 201503

REACTIONS (1)
  - Hunger [Unknown]

NARRATIVE: CASE EVENT DATE: 20160718
